FAERS Safety Report 5571799-6 (Version None)
Quarter: 2007Q4

REPORT INFORMATION
  Report Type: 
  Country: None (occurrence: None)
  Receive Date: 20071221
  Receipt Date: 20071219
  Transmission Date: 20080405
  Serious: Yes (Other)
  Sender: FDA-Public Use
  Company Number: B0500387A

PATIENT
  Age: 25 Year
  Sex: Female

DRUGS (1)
  1. ZOVIRAX [Suspect]
     Indication: ENCEPHALITIS
     Dosage: 500MG THREE TIMES PER DAY
     Route: 042

REACTIONS (1)
  - DEAFNESS [None]
